FAERS Safety Report 18171659 (Version 2)
Quarter: 2020Q3

REPORT INFORMATION
  Report Type: Spontaneous
  Country: AU (occurrence: AU)
  Receive Date: 20200819
  Receipt Date: 20200824
  Transmission Date: 20201103
  Serious: No
  Sender: FDA-Public Use
  Company Number: AU-PFIZER INC-2020315693

PATIENT
  Age: 22 Year
  Sex: Female

DRUGS (2)
  1. METHOTREXATE. [Suspect]
     Active Substance: METHOTREXATE
     Indication: CALCINOSIS
     Dosage: UNK
  2. ALENDRONATE SODIUM. [Suspect]
     Active Substance: ALENDRONATE SODIUM
     Indication: CALCINOSIS
     Dosage: UNK

REACTIONS (3)
  - Infection [Unknown]
  - Off label use [Unknown]
  - Drug ineffective for unapproved indication [Unknown]
